FAERS Safety Report 12414142 (Version 1)
Quarter: 2016Q2

REPORT INFORMATION
  Report Type: Report from Study
  Country: US (occurrence: US)
  Receive Date: 20160527
  Receipt Date: 20160527
  Transmission Date: 20160815
  Serious: No
  Sender: FDA-Public Use
  Company Number: US-MDT-ADR-2016-00480

PATIENT
  Age: 2 Month
  Sex: Male

DRUGS (6)
  1. BUPIVACAINE. [Suspect]
     Active Substance: BUPIVACAINE
     Dosage: 10.506 MG/DAY
     Route: 037
     Dates: start: 20151008
  2. DILAUDID [Suspect]
     Active Substance: HYDROMORPHONE HYDROCHLORIDE
     Dosage: 0.8000 MG/DAY
     Route: 037
     Dates: end: 20151008
  3. DILAUDID [Suspect]
     Active Substance: HYDROMORPHONE HYDROCHLORIDE
     Dosage: 0.7004MG/DAY
     Route: 037
     Dates: start: 20151008
  4. COMPOUNDED BACLOFEN [Suspect]
     Active Substance: BACLOFEN
     Route: 037
     Dates: end: 20151008
  5. BUPIVACAINE. [Suspect]
     Active Substance: BUPIVACAINE
     Route: 037
     Dates: end: 20151008
  6. COMPOUNDED BACLOFEN [Suspect]
     Active Substance: BACLOFEN
     Dosage: 175.09MCG/DAY
     Route: 037
     Dates: start: 20151008

REACTIONS (1)
  - Nausea [Recovered/Resolved]

NARRATIVE: CASE EVENT DATE: 20151008
